FAERS Safety Report 14152403 (Version 1)
Quarter: 2017Q4

REPORT INFORMATION
  Report Type: Spontaneous
  Country: US (occurrence: US)
  Receive Date: 20171102
  Receipt Date: 20171102
  Transmission Date: 20180321
  Serious: No
  Sender: FDA-Public Use
  Company Number: US-WEST-WARD PHARMACEUTICALS CORP.-US-H14001-16-02891

PATIENT

DRUGS (2)
  1. OXCARBAZEPINE ORAL SUSPENSION, 300 MG PER 5 ML SANDOZ [Suspect]
     Active Substance: OXCARBAZEPINE
     Indication: PRODUCT USED FOR UNKNOWN INDICATION
     Route: 065
  2. OXCARBAZEPINE ORAL SUSPENSION, 300 MG PER 5 ML SANDOZ [Suspect]
     Active Substance: OXCARBAZEPINE
     Route: 065

REACTIONS (2)
  - Drug screen negative [Recovered/Resolved]
  - Drug level below therapeutic [None]
